FAERS Safety Report 10413534 (Version 1)
Quarter: 2014Q3

REPORT INFORMATION
  Report Type: Spontaneous
  Country: JP (occurrence: JP)
  Receive Date: 20140827
  Receipt Date: 20140827
  Transmission Date: 20150326
  Serious: Yes (Hospitalization, Other)
  Sender: FDA-Public Use
  Company Number: JP-BAUSCH-BL-2014-003939

PATIENT
  Age: 50 Year
  Sex: Female

DRUGS (1)
  1. VISUDYNE [Suspect]
     Active Substance: VERTEPORFIN
     Indication: PRODUCT USED FOR UNKNOWN INDICATION
     Dates: start: 20140808

REACTIONS (3)
  - Head injury [Unknown]
  - Skull fracture [Unknown]
  - Fall [Unknown]
